FAERS Safety Report 9377362 (Version 2)
Quarter: 2013Q3

REPORT INFORMATION
  Report Type: Spontaneous
  Country: US (occurrence: US)
  Receive Date: 20130701
  Receipt Date: 20130813
  Transmission Date: 20140515
  Serious: Yes (Other)
  Sender: FDA-Public Use
  Company Number: US-PFIZER INC-2013194290

PATIENT
  Age: 58 Year
  Sex: Female
  Weight: 100 kg

DRUGS (7)
  1. LYRICA [Suspect]
     Indication: FIBROMYALGIA
     Dosage: 50MG IN MORNING AND 150MG AT BED TIME, 2X/DAY
     Route: 048
  2. LORTAB [Concomitant]
     Indication: PAIN
     Dosage: ACETAMINOPHEN10MG/ HYDROCODONE 500MG, THREE TO FOUR TIMES
     Route: 048
  3. RANITIDINE [Concomitant]
     Dosage: 150 MG, 2X/DAY
  4. ESTRADIOL [Concomitant]
     Dosage: 1MG DAILY
  5. PROPRANOLOL [Concomitant]
     Dosage: 40 MG, 2X/DAY
  6. CLONAZEPAM [Concomitant]
     Indication: ANXIETY
     Dosage: 0.5 MG, AS NEEDED
  7. AMITRIPTYLINE [Concomitant]
     Indication: SLEEP DISORDER
     Dosage: 75 MG, AS NEEDED

REACTIONS (2)
  - Crohn^s disease [Not Recovered/Not Resolved]
  - Malaise [Not Recovered/Not Resolved]
